FAERS Safety Report 8757865 (Version 1)
Quarter: 2012Q4

REPORT INFORMATION
  Report Type: Report from Study
  Country: VE (occurrence: VE)
  Receive Date: 20120828
  Receipt Date: 20120828
  Transmission Date: 20130627
  Serious: Yes (Death)
  Sender: FDA-Public Use
  Company Number: VE-SHIRE-ALL1-2012-03999

PATIENT
  Age: 12 Year
  Sex: Male

DRUGS (1)
  1. IDURSULFASE [Suspect]
     Indication: MUCOPOLYSACCHARIDOSIS II
     Dosage: 0.5 mg/kg, 1x/week
     Route: 041
     Dates: start: 2009

REACTIONS (3)
  - Dengue fever [Fatal]
  - Infusion related reaction [Recovered/Resolved]
  - Rash [Recovered/Resolved]
